FAERS Safety Report 9773253 (Version 2)
Quarter: 2014Q3

REPORT INFORMATION
  Report Type: Spontaneous
  Country: JP (occurrence: JP)
  Receive Date: 20131219
  Receipt Date: 20140916
  Transmission Date: 20150326
  Serious: Yes (Other)
  Sender: FDA-Public Use
  Company Number: JP-GLAXOSMITHKLINE-B0932241A

PATIENT
  Age: 8 Decade
  Sex: Female

DRUGS (5)
  1. HEPSERA [Suspect]
     Active Substance: ADEFOVIR DIPIVOXIL
     Indication: HEPATIC CIRRHOSIS
     Route: 048
     Dates: start: 200505, end: 2010
  2. ZEFIX [Suspect]
     Active Substance: LAMIVUDINE
     Indication: HEPATIC CIRRHOSIS
     Route: 048
     Dates: end: 2010
  3. ZEFIX [Suspect]
     Active Substance: LAMIVUDINE
     Indication: HEPATIC CIRRHOSIS
     Dosage: 100MG PER DAY
     Route: 048
     Dates: start: 2010
  4. HEPSERA [Suspect]
     Active Substance: ADEFOVIR DIPIVOXIL
     Indication: HEPATIC CIRRHOSIS
     Dosage: 10MG PER DAY
     Route: 048
     Dates: start: 2010, end: 2013
  5. HEPSERA [Suspect]
     Active Substance: ADEFOVIR DIPIVOXIL
     Indication: HEPATIC CIRRHOSIS
     Dosage: 10MG TWO TIMES PER WEEK
     Route: 048
     Dates: start: 2013

REACTIONS (16)
  - Osteoporosis [Unknown]
  - Drug tolerance [Unknown]
  - Musculoskeletal pain [Recovering/Resolving]
  - Hyperphosphatasaemia [Unknown]
  - Hypophosphataemia [Recovered/Resolved]
  - Fanconi syndrome [Unknown]
  - Intervertebral disc protrusion [Unknown]
  - Metabolic acidosis [Unknown]
  - Ulna fracture [Recovered/Resolved]
  - Platelet count decreased [Unknown]
  - Blood uric acid increased [Unknown]
  - Aminoaciduria [Unknown]
  - Osteomalacia [Unknown]
  - Glucose urine present [Unknown]
  - Back pain [Recovering/Resolving]
  - Hypoalbuminaemia [Unknown]

NARRATIVE: CASE EVENT DATE: 201005
